FAERS Safety Report 9293527 (Version 1)
Quarter: 2013Q2

REPORT INFORMATION
  Report Type: Report from Study
  Country: BE (occurrence: BE)
  Receive Date: 20130516
  Receipt Date: 20130516
  Transmission Date: 20140414
  Serious: Yes (Hospitalization)
  Sender: FDA-Public Use
  Company Number: PHHO2013BE005839

PATIENT
  Age: 81 Year
  Sex: Male
  Weight: 79 kg

DRUGS (8)
  1. BLINDED ALISKIREN [Suspect]
     Indication: CARDIAC FAILURE CHRONIC
     Dosage: CODE NOT BROKEN
     Route: 048
     Dates: start: 20110517, end: 20130425
  2. BLINDED ENALAPRIL [Suspect]
     Indication: CARDIAC FAILURE CHRONIC
     Dosage: CODE NOT BROKEN
     Route: 048
     Dates: start: 20110517, end: 20130425
  3. BLINDED NO TREATMENT RECEIVED [Suspect]
     Indication: CARDIAC FAILURE CHRONIC
     Dosage: CODE NOT BROKEN
     Route: 048
     Dates: start: 20110517, end: 20130425
  4. HYDRALAZINE [Suspect]
     Indication: CARDIAC FAILURE CHRONIC
     Dosage: 12.5 MG, TID
     Route: 048
     Dates: start: 20121214, end: 20130425
  5. ALDACTONE [Suspect]
     Indication: CARDIAC FAILURE CHRONIC
     Dosage: 25 MG, QD
     Route: 048
     Dates: start: 20110426, end: 20130425
  6. BURINEX [Suspect]
     Indication: CARDIAC FAILURE CHRONIC
     Dosage: 1 MG, QD
     Route: 048
     Dates: start: 20121114
  7. SIMVASTATIN [Concomitant]
     Indication: CARDIOVASCULAR DISORDER
     Dosage: 40 MG, QD
     Route: 048
     Dates: end: 20130425
  8. MAREVAN [Concomitant]
     Indication: ATRIAL FIBRILLATION
     Dosage: PER INR, QD
     Route: 048
     Dates: start: 20110428

REACTIONS (1)
  - Renal impairment [Recovering/Resolving]
